FAERS Safety Report 18975271 (Version 1)
Quarter: 2021Q1

REPORT INFORMATION
  Report Type: Other
  Country: IT (occurrence: IT)
  Receive Date: 20210306
  Receipt Date: 20210306
  Transmission Date: 20210420
  Serious: Yes (Other)
  Sender: FDA-Public Use
  Company Number: IT-ROCHE-2320868

PATIENT

DRUGS (3)
  1. BEVACIZUMAB. [Suspect]
     Active Substance: BEVACIZUMAB
     Indication: BREAST CANCER METASTATIC
     Dosage: 10 MG/KG EVERY 2 WEEKS OR 15 MG/KG EVERY 3 WEEKS INTRAVENOUSLY
     Route: 042
  2. PACLITAXEL. [Concomitant]
     Active Substance: PACLITAXEL
     Indication: BREAST CANCER METASTATIC
  3. ERIBULIN [Suspect]
     Active Substance: ERIBULIN
     Indication: BREAST CANCER METASTATIC
     Route: 042

REACTIONS (15)
  - Constipation [Unknown]
  - Alanine aminotransferase increased [Unknown]
  - Abdominal pain [Unknown]
  - Neutropenia [Unknown]
  - Fatigue [Unknown]
  - Stomatitis [Unknown]
  - Headache [Unknown]
  - Embolism [Unknown]
  - Alopecia [Unknown]
  - Aspartate aminotransferase increased [Unknown]
  - Thrombocytopenia [Unknown]
  - Paraesthesia [Unknown]
  - Hypertension [Unknown]
  - Febrile neutropenia [Unknown]
  - Pyrexia [Unknown]
